FAERS Safety Report 11911980 (Version 2)
Quarter: 2021Q1

REPORT INFORMATION
  Report Type: Spontaneous
  Country: GB (occurrence: GB)
  Receive Date: 20160112
  Receipt Date: 20210309
  Transmission Date: 20210419
  Serious: Yes (Other)
  Sender: FDA-Public Use
  Company Number: GB-BAUSCH-BL-2016-000330

PATIENT
  Age: 36 Year
  Sex: Female

DRUGS (8)
  1. MINI?PILL [Interacting]
     Active Substance: NORETHINDRONE
     Indication: POLYCYSTIC OVARIES
     Dosage: 75 DAYS PRIOR TO STARTING THE DAAS
     Route: 065
  2. SOFOSBUVIR [Interacting]
     Active Substance: SOFOSBUVIR
     Indication: ANTIVIRAL TREATMENT
     Route: 048
     Dates: start: 201408
  3. LEVOTHYROXINE. [Concomitant]
     Active Substance: LEVOTHYROXINE
     Indication: PRODUCT USED FOR UNKNOWN INDICATION
  4. DACLATASVIR. [Interacting]
     Active Substance: DACLATASVIR
     Indication: ANTIVIRAL TREATMENT
     Route: 048
     Dates: start: 201408
  5. NORETHISTERONE [Interacting]
     Active Substance: NORETHINDRONE
     Indication: POLYCYSTIC OVARIES
     Dosage: 5 MG THREE TIMES A DAY FOR 3 WEEKS EACH MONTH
     Route: 065
     Dates: start: 2010, end: 201405
  6. RIGEVIDON [ETHINYL ESTRADIOL\LEVONORGESTREL] [Suspect]
     Active Substance: ETHINYL ESTRADIOL\LEVONORGESTREL
     Indication: POLYCYSTIC OVARIES
     Dosage: LEVONORGESTREL 150 MCG / ETHINYLESTRADIOL 30 MCG, 11 DAYS PRIOR TO STARTING ANTI?HCV THERAPY
     Route: 065
     Dates: start: 20140731
  7. RIBAVIRIN. [Suspect]
     Active Substance: RIBAVIRIN
     Indication: ANTIVIRAL TREATMENT
     Route: 048
     Dates: start: 201408
  8. NORETHISTERONE [Interacting]
     Active Substance: NORETHINDRONE
     Route: 065
     Dates: start: 201407

REACTIONS (2)
  - Drug interaction [Unknown]
  - Drug-induced liver injury [Not Recovered/Not Resolved]
